FAERS Safety Report 18427172 (Version 2)
Quarter: 2020Q4

REPORT INFORMATION
  Report Type: Report from Study
  Country: TR (occurrence: TR)
  Receive Date: 20201026
  Receipt Date: 20201030
  Transmission Date: 20210114
  Serious: Yes (Death)
  Sender: FDA-Public Use
  Company Number: TR-JNJFOC-20201037627

PATIENT
  Age: 72 Year
  Sex: Male

DRUGS (1)
  1. VENTAVIS [Suspect]
     Active Substance: ILOPROST
     Indication: PULMONARY ARTERIAL HYPERTENSION
     Route: 055
     Dates: start: 20190924, end: 20200716

REACTIONS (1)
  - Death [Fatal]

NARRATIVE: CASE EVENT DATE: 20200716
